FAERS Safety Report 8045183-X (Version None)
Quarter: 2012Q1

REPORT INFORMATION
  Report Type: 
  Country: None (occurrence: None)
  Receive Date: 20120113
  Receipt Date: 20110926
  Transmission Date: 20120608
  Serious: Yes (Other)
  Sender: FDA-Public Use
  Company Number: US-ASTRAZENECA-2011SE57926

PATIENT
  Age: 82 Year
  Sex: Female

DRUGS (2)
  1. SEROQUEL XR [Suspect]
     Indication: SLEEP DISORDER
     Route: 048
  2. SEROQUEL XR [Suspect]
     Route: 048

REACTIONS (5)
  - CONVULSION [None]
  - SOMNOLENCE [None]
  - OFF LABEL USE [None]
  - CEREBROVASCULAR ACCIDENT [None]
  - FATIGUE [None]
